FAERS Safety Report 22218781 (Version 2)
Quarter: 2023Q2

REPORT INFORMATION
  Report Type: Spontaneous
  Country: CO (occurrence: CO)
  Receive Date: 20230417
  Receipt Date: 20230629
  Transmission Date: 20230721
  Serious: No
  Sender: FDA-Public Use
  Company Number: CO-PFIZER INC-202300146080

PATIENT
  Age: 9 Year
  Sex: Female
  Weight: 29 kg

DRUGS (1)
  1. GENOTROPIN [Suspect]
     Active Substance: SOMATROPIN
     Indication: Short stature
     Dosage: 1.0 MG, DAILY
     Route: 058
     Dates: start: 20230321

REACTIONS (2)
  - Drug dose omission by device [Unknown]
  - Device leakage [Unknown]
